FAERS Safety Report 14656599 (Version 3)
Quarter: 2018Q4

REPORT INFORMATION
  Report Type: Spontaneous
  Country: US (occurrence: US)
  Receive Date: 20180319
  Receipt Date: 20181011
  Transmission Date: 20190204
  Serious: Yes (Life-Threatening, Other)
  Sender: FDA-Public Use
  Company Number: US-PFIZER INC-2018110702

PATIENT
  Age: 82 Year
  Sex: Male

DRUGS (2)
  1. PACLITAXEL. [Suspect]
     Active Substance: PACLITAXEL
     Indication: OESOPHAGEAL ADENOCARCINOMA
     Dosage: 60 MG/M2, CYCLIC
  2. CARBOPLATIN. [Concomitant]
     Active Substance: CARBOPLATIN
     Indication: OESOPHAGEAL ADENOCARCINOMA
     Dosage: WEEKLY CARBOPLATIN AREA UNDER THE CURVE (AUC): 2

REACTIONS (3)
  - Adenocarcinoma of appendix [Recovering/Resolving]
  - Second primary malignancy [Recovering/Resolving]
  - Product use in unapproved indication [Unknown]
